FAERS Safety Report 4750448-0 (Version None)
Quarter: 2005Q3

REPORT INFORMATION
  Report Type: 
  Country: None (occurrence: None)
  Receive Date: 20050823
  Receipt Date: 20050818
  Transmission Date: 20060218
  Serious: Yes (Death, Other)
  Sender: FDA-Public Use
  Company Number: PHBS2005JP12018

PATIENT
  Age: 68 Year
  Sex: Female
  Weight: 36 kg

DRUGS (2)
  1. PREDNISOLONE [Suspect]
     Indication: RHEUMATOID ARTHRITIS
     Dosage: 10 MG/DAY
     Route: 048
  2. VOLTAREN [Suspect]
     Indication: RHEUMATOID ARTHRITIS
     Route: 048
     Dates: start: 19870101, end: 20030101

REACTIONS (8)
  - ABDOMINAL PAIN [None]
  - ANAEMIA [None]
  - CANDIDIASIS [None]
  - GASTRITIS [None]
  - MULTI-ORGAN FAILURE [None]
  - PERITONITIS [None]
  - SEPSIS [None]
  - SMALL INTESTINAL PERFORATION [None]
